FAERS Safety Report 8097829-8 (Version None)
Quarter: 2012Q1

REPORT INFORMATION
  Report Type: 
  Country: None (occurrence: None)
  Receive Date: 20120128
  Receipt Date: 20110805
  Transmission Date: 20120608
  Serious: No
  Sender: FDA-Public Use
  Company Number: US-ABBOTT-11P-163-0844385-00

PATIENT
  Sex: Female

DRUGS (3)
  1. REQUIP [Concomitant]
     Indication: RESTLESS LEGS SYNDROME
  2. HUMIRA [Suspect]
     Indication: PSORIASIS
     Dates: start: 20110501
  3. VIVELLE [Concomitant]
     Indication: PRODUCT USED FOR UNKNOWN INDICATION

REACTIONS (2)
  - MYALGIA [None]
  - NAUSEA [None]
